FAERS Safety Report 5045279-0 (Version None)
Quarter: 2006Q2

REPORT INFORMATION
  Report Type: 
  Country: None (occurrence: None)
  Receive Date: 20060601
  Receipt Date: 20060407
  Transmission Date: 20061013
  Serious: No
  Sender: FDA-Public Use
  Company Number: 2006-BP-03961BP

PATIENT
  Sex: Male

DRUGS (2)
  1. SPIRIVA [Suspect]
     Dosage: 108 MCG (18 MCG, 6 IN 1 D), IH
     Route: 055
     Dates: start: 20060407, end: 20060407
  2. DIGOXIN [Concomitant]

REACTIONS (2)
  - OVERDOSE [None]
  - TACHYCARDIA [None]
